FAERS Safety Report 7637305-7 (Version None)
Quarter: 2011Q3

REPORT INFORMATION
  Report Type: 
  Country: None (occurrence: None)
  Receive Date: 20110726
  Receipt Date: 20110713
  Transmission Date: 20111222
  Serious: Yes (Hospitalization)
  Sender: FDA-Public Use
  Company Number: US-ELI_LILLY_AND_COMPANY-US201009003979

PATIENT
  Sex: Female
  Weight: 69.388 kg

DRUGS (25)
  1. TEKTURNA [Concomitant]
     Indication: BLOOD PRESSURE
     Dosage: 300 MG, QD
  2. MAGNESIUM [Concomitant]
     Indication: EYE DISORDER
     Dosage: 400 MG, QD
  3. FORTEO [Suspect]
     Dosage: 20 UG, QD
     Route: 058
  4. CRESTOR [Concomitant]
     Dosage: 10 MG, QD
  5. POLYETHYLENE GLYCOL [Concomitant]
     Indication: CONSTIPATION
     Dosage: UNK
  6. VITAMIN E [Concomitant]
     Dosage: 400 MG, QD
  7. FORTEO [Suspect]
     Indication: OSTEOPOROSIS
     Dosage: 20 UG, DAILY (1/D)
     Route: 058
     Dates: start: 20100708
  8. ASCORBIC ACID [Concomitant]
     Dosage: 1000 MG, QD
  9. MULTI-VITAMIN [Concomitant]
     Dosage: UNK, QD
  10. VITAMIN D [Concomitant]
     Dosage: 2000 IU, QD
  11. SOMA [Concomitant]
     Dosage: 250 MG, UNK
     Dates: end: 20110414
  12. MIRALAX [Concomitant]
     Indication: CONSTIPATION
  13. FORTEO [Suspect]
     Dosage: 20 UG, DAILY (1/D)
     Route: 058
  14. FORTEO [Suspect]
     Dosage: 20 UG, DAILY (1/D)
     Route: 058
  15. BYSTOLIC [Concomitant]
     Indication: BLOOD PRESSURE
     Dosage: 10 MG, QD
  16. ASPIRIN [Concomitant]
     Dosage: 81 MG, QD
  17. CALCIUM ACETATE [Concomitant]
     Indication: EYE DISORDER
     Dosage: UNK, QD
  18. MELOXICAM [Concomitant]
     Indication: INFLAMMATION
     Dosage: 7.5 MG, QD
  19. OMEPRAZOLE [Concomitant]
     Dosage: 20 MG, QD
  20. SYNTHROID [Concomitant]
     Dosage: 0.075 MG, QD
  21. ZINC [Concomitant]
     Dosage: 15 MG, QD
  22. FORTEO [Suspect]
     Dosage: 20 UG, DAILY (1/D)
     Route: 058
  23. DIOVAN [Concomitant]
     Indication: BLOOD PRESSURE
     Dosage: 320 MG, QD
  24. DIGOXIN [Concomitant]
     Dosage: 0.125 MG, QD
  25. HYDROCODONE BITARTRATE [Concomitant]
     Dosage: 5 MG, PRN

REACTIONS (11)
  - HYPOAESTHESIA [None]
  - SPINAL COLUMN INJURY [None]
  - PAIN IN EXTREMITY [None]
  - SPINAL COLUMN STENOSIS [None]
  - TENDON DISORDER [None]
  - NERVE INJURY [None]
  - SPINAL FRACTURE [None]
  - POOR PERIPHERAL CIRCULATION [None]
  - BACK PAIN [None]
  - PAIN [None]
  - ARTHRALGIA [None]
